FAERS Safety Report 8045700-X (Version None)
Quarter: 2012Q1

REPORT INFORMATION
  Report Type: 
  Country: None (occurrence: None)
  Receive Date: 20120113
  Receipt Date: 20120110
  Transmission Date: 20120608
  Serious: Yes (Other)
  Sender: FDA-Public Use
  Company Number: JP-CELGENEUS-087-21880-10113313

PATIENT
  Sex: Female
  Weight: 45 kg

DRUGS (40)
  1. REVLIMID [Suspect]
     Dosage: 25 MILLIGRAM
     Route: 048
     Dates: start: 20101204, end: 20101214
  2. REVLIMID [Suspect]
     Dosage: 15 MILLIGRAM
     Route: 048
     Dates: start: 20110331, end: 20110420
  3. REVLIMID [Suspect]
     Dosage: 20 MILLIGRAM
     Route: 048
     Dates: start: 20110526, end: 20110615
  4. DEXAMETHASONE ACETATE [Suspect]
     Dosage: 20 MILLIGRAM
     Route: 048
     Dates: start: 20101212, end: 20101214
  5. DEXAMETHASONE ACETATE [Suspect]
     Dosage: 20 MILLIGRAM
     Route: 048
     Dates: start: 20110107, end: 20110113
  6. DEXAMETHASONE ACETATE [Suspect]
     Dosage: 20 MILLIGRAM
     Route: 048
     Dates: start: 20110714, end: 20110717
  7. OMEPRAZOLE [Concomitant]
     Indication: PROPHYLAXIS
     Dosage: 20 MILLIGRAM
     Route: 048
     Dates: start: 20101008
  8. BASEN [Concomitant]
     Indication: DIABETES MELLITUS
     Dosage: .6 MILLIGRAM
     Route: 048
  9. AMARYL [Concomitant]
     Indication: DIABETES MELLITUS
     Dosage: 2 MILLIGRAM
     Route: 048
     Dates: start: 20101008, end: 20101025
  10. NORVASC [Concomitant]
     Indication: HYPERTENSION
     Dosage: 2.5 MILLIGRAM
     Route: 048
  11. DEXAMETHASONE ACETATE [Suspect]
     Indication: MULTIPLE MYELOMA
     Dosage: 20 MILLIGRAM
     Route: 048
     Dates: start: 20101009, end: 20101026
  12. DEXAMETHASONE ACETATE [Suspect]
     Dosage: 20 MILLIGRAM
     Route: 048
     Dates: start: 20110121, end: 20110124
  13. DEXAMETHASONE ACETATE [Suspect]
     Dosage: 20 MILLIGRAM
     Route: 048
     Dates: start: 20110218, end: 20110221
  14. ZOMETA [Concomitant]
     Dosage: 4 MILLIGRAM
     Route: 041
     Dates: start: 20101217, end: 20101217
  15. REVLIMID [Suspect]
     Indication: MULTIPLE MYELOMA
     Dosage: 25 MILLIGRAM
     Route: 048
     Dates: start: 20101009, end: 20101029
  16. REVLIMID [Suspect]
     Dosage: 25 MILLIGRAM
     Route: 048
     Dates: start: 20101106, end: 20101126
  17. DEXAMETHASONE ACETATE [Suspect]
     Dosage: 20 MILLIGRAM
     Route: 048
     Dates: start: 20110325, end: 20110328
  18. ASPIRIN [Concomitant]
     Indication: PROPHYLAXIS
     Dosage: 100 MILLIGRAM
     Route: 048
     Dates: start: 20101203
  19. REVLIMID [Suspect]
     Dosage: 20 MILLIGRAM
     Route: 048
     Dates: start: 20110428, end: 20110518
  20. REVLIMID [Suspect]
     Dosage: 20 MILLIGRAM
     Route: 048
     Dates: start: 20110714, end: 20110803
  21. DEXAMETHASONE ACETATE [Suspect]
     Dosage: 20 MILLIGRAM
     Route: 048
     Dates: start: 20101106, end: 20101125
  22. DEXAMETHASONE ACETATE [Suspect]
     Dosage: 20 MILLIGRAM
     Route: 048
     Dates: start: 20101204, end: 20101207
  23. DEXAMETHASONE ACETATE [Suspect]
     Dosage: 20 MILLIGRAM
     Route: 048
     Dates: start: 20110526, end: 20110529
  24. VALTREX [Concomitant]
     Dosage: 500 MILLIGRAM
     Route: 048
     Dates: start: 20100101
  25. AMARYL [Concomitant]
     Dosage: 2 MILLIGRAM
     Route: 048
     Dates: start: 20101105, end: 20101112
  26. AMARYL [Concomitant]
     Dosage: 2 MILLIGRAM
     Route: 048
     Dates: start: 20101119, end: 20101122
  27. ZOMETA [Concomitant]
     Dosage: 4 MILLIGRAM
     Route: 041
     Dates: start: 20101119, end: 20101119
  28. REVLIMID [Suspect]
     Dosage: 15 MILLIGRAM
     Route: 048
     Dates: start: 20110226, end: 20110318
  29. REVLIMID [Suspect]
     Dosage: 20 MILLIGRAM
     Route: 048
     Dates: start: 20110811, end: 20110831
  30. REVLIMID [Suspect]
     Dosage: 20 MILLIGRAM
     Route: 048
     Dates: start: 20110908, end: 20110928
  31. DEXAMETHASONE ACETATE [Suspect]
     Dosage: 20 MILLIGRAM
     Route: 048
     Dates: start: 20110428, end: 20110501
  32. DEXAMETHASONE ACETATE [Suspect]
     Dosage: 20 MILLIGRAM
     Route: 048
     Dates: start: 20110811, end: 20110814
  33. DEXAMETHASONE ACETATE [Suspect]
     Dosage: 20 MILLIGRAM
     Route: 048
     Dates: start: 20111013, end: 20111016
  34. ARMODAFINIL [Concomitant]
     Indication: PROPHYLAXIS
     Dosage: 200 MILLIGRAM
     Route: 048
  35. BEZATOL SR [Concomitant]
     Dosage: 400 MILLIGRAM
     Route: 048
     Dates: end: 20101014
  36. REVLIMID [Suspect]
     Dosage: 25 MILLIGRAM
     Route: 048
     Dates: start: 20110107, end: 20110128
  37. DEXAMETHASONE ACETATE [Suspect]
     Dosage: 20 MILLIGRAM
     Route: 048
     Dates: start: 20110908, end: 20110911
  38. BAKTAR [Concomitant]
     Indication: PROPHYLAXIS
     Dosage: 2 TABLET
     Route: 048
  39. AMARYL [Concomitant]
     Dosage: 2 MILLIGRAM
     Route: 048
     Dates: start: 20101203, end: 20101210
  40. REVLIMID [Suspect]
     Dosage: 20 MILLIGRAM
     Route: 048
     Dates: start: 20111013, end: 20111102

REACTIONS (9)
  - TONSILLITIS [None]
  - DIABETES MELLITUS [None]
  - MALAISE [None]
  - GASTRIC ULCER [None]
  - DYSGEUSIA [None]
  - NEUROPATHY PERIPHERAL [None]
  - ECZEMA [None]
  - NEUTROPHIL COUNT DECREASED [None]
  - DIARRHOEA [None]
